FAERS Safety Report 4310225-1 (Version None)
Quarter: 2004Q1

REPORT INFORMATION
  Report Type: 
  Country: None (occurrence: None)
  Receive Date: 20040301
  Receipt Date: 20031226
  Transmission Date: 20041129
  Serious: No
  Sender: FDA-Public Use
  Company Number: WAES 0312USA02548

PATIENT
  Age: 76 Year
  Sex: Female

DRUGS (4)
  1. ZETIA [Suspect]
     Dosage: 10 MG /DAILY/PO
     Route: 048
     Dates: start: 20031224
  2. DIOVAN [Concomitant]
  3. NORVASC [Concomitant]
  4. TENORMIN [Concomitant]

REACTIONS (5)
  - HYPOAESTHESIA [None]
  - LYMPHADENOPATHY [None]
  - PARAESTHESIA [None]
  - TINNITUS [None]
  - VISION BLURRED [None]
